FAERS Safety Report 20974162 (Version 1)
Quarter: 2022Q2

REPORT INFORMATION
  Report Type: Report from Study
  Country: GB (occurrence: GB)
  Receive Date: 20220617
  Receipt Date: 20220617
  Transmission Date: 20220720
  Serious: Yes (Other)
  Sender: FDA-Public Use
  Company Number: GB-ROCHE-3099802

PATIENT
  Age: 68 Year
  Sex: Female
  Weight: 42.6 kg

DRUGS (24)
  1. CARBOPLATIN [Suspect]
     Active Substance: CARBOPLATIN
     Indication: Small cell lung cancer extensive stage
     Dosage: UNIT DOSE:400MG
     Route: 065
     Dates: start: 20210810
  2. ETOPOSIDE [Suspect]
     Active Substance: ETOPOSIDE
     Indication: Small cell lung cancer extensive stage
     Dosage: UNIT DOSE:400MG
     Route: 042
     Dates: start: 20210810
  3. ATEZOLIZUMAB [Suspect]
     Active Substance: ATEZOLIZUMAB
     Indication: Small cell lung cancer extensive stage
     Dosage: DATE OF MOST RECENT DOSE OF STUDY DRUG PRIOR TO AE: 29/MAR/2022 + 19/APR/2022, UNIT DOSE:1200MG, FRE
     Route: 041
     Dates: start: 20210810
  4. AVEENO [Concomitant]
     Active Substance: DIMETHICONE\HOMOSALATE\OCTINOXATE\OCTISALATE\TITANIUM DIOXIDE
     Dosage: FREQUENCY: THRICE A DAY
     Route: 065
     Dates: start: 20211110
  5. CETIRIZINE [Concomitant]
     Active Substance: CETIRIZINE HYDROCHLORIDE
     Dosage: FREQUENCY: ONCE A DAY
     Route: 065
     Dates: start: 20211029
  6. CODEINE PHOSPHATE [Concomitant]
     Active Substance: CODEINE PHOSPHATE
     Route: 065
     Dates: start: 20210622
  7. DALTEPARIN [Concomitant]
     Active Substance: DALTEPARIN
     Dosage: FREQUENCY: ONCE A DAY
     Route: 065
     Dates: start: 20210809
  8. DEXAMETHASONE [Concomitant]
     Active Substance: DEXAMETHASONE
     Dosage: FREQUENCY: ONCE A DAY
     Route: 065
     Dates: start: 20220414
  9. ALBUTEROL [Concomitant]
     Active Substance: ALBUTEROL
     Dosage: DRY POWDER
     Route: 065
     Dates: start: 20210430
  10. FENTANYL [Concomitant]
     Active Substance: FENTANYL
     Dosage: FREQUENCY: ONCE EVERY 2 HOURS
     Route: 065
     Dates: start: 20220503
  11. FLUCONAZOLE [Concomitant]
     Active Substance: FLUCONAZOLE
     Dosage: FREQUENCY: ONCE A DAY
     Route: 065
     Dates: start: 20220414
  12. GLYCOPYRROLATE [Concomitant]
     Active Substance: GLYCOPYRROLATE
     Route: 065
     Dates: start: 20210308
  13. LANSOPRAZOLE [Concomitant]
     Active Substance: LANSOPRAZOLE
     Dosage: FREQUENCY: ONCE A DAY
     Route: 065
     Dates: start: 20220325
  14. LISINOPRIL [Concomitant]
     Active Substance: LISINOPRIL
     Dosage: FREQUENCY: ONCE A DAY
     Route: 065
     Dates: start: 20220405
  15. LISINOPRIL [Concomitant]
     Active Substance: LISINOPRIL
     Dosage: FREQUENCY: ONCE A DAY
     Route: 065
     Dates: start: 20210907
  16. METOCLOPRAMIDE [Concomitant]
     Active Substance: METOCLOPRAMIDE
     Route: 065
     Dates: start: 20220325
  17. MORPHINE SULFATE [Concomitant]
     Active Substance: MORPHINE SULFATE
     Route: 065
     Dates: start: 20220414
  18. MORPHINE SULFATE [Concomitant]
     Active Substance: MORPHINE SULFATE
     Route: 065
     Dates: start: 20220325
  19. ALUMINUM HYDROXIDE\DIMETHICONE\MAGNESIUM HYDROXIDE [Concomitant]
     Active Substance: ALUMINUM HYDROXIDE\DIMETHICONE\MAGNESIUM HYDROXIDE
     Dosage: FREQUENCY: ONCE A DAY
     Route: 065
     Dates: start: 20220414
  20. NICORETTE [Concomitant]
     Active Substance: NICOTINE
     Dosage: FREQUENCY: ONCE A DAY
     Route: 065
     Dates: start: 20210809
  21. ACETAMINOPHEN [Concomitant]
     Active Substance: ACETAMINOPHEN
     Route: 065
     Dates: start: 20210809
  22. SIMVASTATIN [Concomitant]
     Active Substance: SIMVASTATIN
     Dosage: FREQUENCY: ONCE A DAY
     Route: 065
     Dates: start: 20210614
  23. SODIUM CHLORIDE [Concomitant]
     Active Substance: SODIUM CHLORIDE
     Dosage: UNIT DOSE: 510ML, DURATION: 1 DAYS
     Route: 065
     Dates: start: 20220419, end: 20220419
  24. ZOPICLONE [Concomitant]
     Active Substance: ZOPICLONE
     Route: 065
     Dates: start: 20210908

REACTIONS (3)
  - Chronic kidney disease [Not Recovered/Not Resolved]
  - Blood alkaline phosphatase increased [Not Recovered/Not Resolved]
  - Hyponatraemia [Not Recovered/Not Resolved]

NARRATIVE: CASE EVENT DATE: 20220414
